FAERS Safety Report 7428564-4 (Version None)
Quarter: 2011Q2

REPORT INFORMATION
  Report Type: 
  Country: None (occurrence: None)
  Receive Date: 20110421
  Receipt Date: 20091220
  Transmission Date: 20111010
  Serious: Yes (Death, Other)
  Sender: FDA-Public Use
  Company Number: US-BAYER-2011-009224

PATIENT
  Age: 63 Year
  Sex: Male

DRUGS (6)
  1. LOPRESSOR [Concomitant]
     Dosage: 25 MG, UNK
     Dates: start: 19981224
  2. ACETYLSALICYLIC ACID SRT [Concomitant]
     Dosage: 325 MG, UNK
     Route: 048
     Dates: start: 19950101, end: 19990101
  3. CAPOTEN [Concomitant]
     Dosage: 12.5 UNK, UNK
     Route: 048
     Dates: start: 19990106
  4. NORVASC [Concomitant]
     Dosage: 10 MG, UNK
     Route: 048
     Dates: start: 19980101
  5. TRASYLOL [Suspect]
     Indication: CARDIAC OPERATION
     Dosage: UNK
     Route: 042
     Dates: start: 19990128
  6. COZAAR [Concomitant]
     Dosage: 25 MG, UNK
     Route: 048
     Dates: start: 19990113

REACTIONS (9)
  - ANHEDONIA [None]
  - RENAL FAILURE [None]
  - FEAR [None]
  - DEATH [None]
  - ANXIETY [None]
  - UNEVALUABLE EVENT [None]
  - PAIN [None]
  - INJURY [None]
  - DEPRESSION [None]
